FAERS Safety Report 19395336 (Version 2)
Quarter: 2021Q3

REPORT INFORMATION
  Report Type: Other
  Country: US (occurrence: US)
  Receive Date: 20210609
  Receipt Date: 20210716
  Transmission Date: 20211014
  Serious: Yes (Other)
  Sender: FDA-Public Use
  Company Number: US-ROCHE-2843533

PATIENT
  Sex: Female

DRUGS (1)
  1. OCREVUS [Suspect]
     Active Substance: OCRELIZUMAB
     Indication: MULTIPLE SCLEROSIS
     Dosage: DATE OF DOSES: 09/JUL/2019, 24/JUL/2019, 22/JAN/2020, 30/JUL/2020, 31/DEC/2020,
     Route: 042

REACTIONS (2)
  - Ligament sprain [Unknown]
  - Neoplasm malignant [Unknown]
